FAERS Safety Report 8231942-7 (Version None)
Quarter: 2012Q1

REPORT INFORMATION
  Report Type: 
  Country: None (occurrence: None)
  Receive Date: 20120323
  Receipt Date: 20120305
  Transmission Date: 20120608
  Serious: Yes (Hospitalization, Other)
  Sender: FDA-Public Use
  Company Number: DK-ROCHE-1046761

PATIENT
  Sex: Female
  Weight: 74 kg

DRUGS (30)
  1. MABTHERA [Suspect]
     Indication: MALIGNANT LYMPHOID NEOPLASM
     Route: 042
     Dates: start: 20120207
  2. SULFAMETIZOL [Concomitant]
     Indication: INFECTION
     Dosage: 400/80 MG
     Dates: start: 20120207
  3. MABTHERA [Suspect]
     Dosage: LAST DOSE PRIOR TO SAE WAS ON 13/FEB/2012
     Route: 042
     Dates: start: 20120305
  4. PREDNISONE [Suspect]
     Route: 048
     Dates: start: 20120220, end: 20120224
  5. CLEMASTINE FUMARATE [Concomitant]
     Route: 048
     Dates: start: 20120207, end: 20120207
  6. CLEMASTINE FUMARATE [Concomitant]
     Route: 048
     Dates: start: 20120227, end: 20120227
  7. CYCLOPHOSPHAMIDE [Suspect]
     Indication: MALIGNANT LYMPHOID NEOPLASM
     Route: 042
     Dates: start: 20120207
  8. DOXORUBICIN HYDROCHLORIDE [Suspect]
     Indication: MALIGNANT LYMPHOID NEOPLASM
     Route: 042
     Dates: start: 20120207
  9. PREDNISONE [Suspect]
     Indication: MALIGNANT LYMPHOID NEOPLASM
     Route: 048
     Dates: start: 20120207
  10. PREDNISONE TAB [Suspect]
     Route: 048
     Dates: start: 20120227, end: 20120227
  11. NEULASTA [Suspect]
     Route: 058
     Dates: start: 20120223
  12. CLEMASTINE FUMARATE [Concomitant]
     Route: 048
     Dates: start: 20120213, end: 20120213
  13. BACTRIM [Concomitant]
     Indication: INFECTION
     Dosage: DOSE: 400/80 MG
     Route: 048
     Dates: start: 20120207
  14. MABTHERA [Suspect]
     Route: 042
     Dates: start: 20120213
  15. ACYCLOVIR [Concomitant]
     Indication: INFECTION
     Route: 048
     Dates: start: 20120207
  16. ACETAMINOPHEN [Concomitant]
     Indication: PAIN
     Route: 048
     Dates: start: 20120213, end: 20120213
  17. ONDANSETRON [Concomitant]
     Indication: NAUSEA
     Route: 048
     Dates: start: 20120207, end: 20120208
  18. CYCLOPHOSPHAMIDE [Suspect]
     Dosage: 05/MAR/2012: LAST DOSE PRIOE TO ONSET OF SAE
     Route: 042
     Dates: start: 20120305
  19. VINCRISTINE [Suspect]
     Indication: MALIGNANT LYMPHOID NEOPLASM
     Route: 042
     Dates: start: 20120207
  20. NEULASTA [Suspect]
     Indication: MALIGNANT LYMPHOID NEOPLASM
     Route: 058
     Dates: start: 20120210, end: 20120210
  21. LANSOPRAZOLE [Concomitant]
     Route: 048
     Dates: start: 20120113, end: 20120305
  22. ALLOPURINOL [Concomitant]
     Route: 048
     Dates: start: 20120207
  23. ACETAMINOPHEN [Concomitant]
     Route: 048
     Dates: start: 20120220, end: 20120220
  24. VINCRISTINE [Suspect]
     Route: 042
     Dates: start: 20120305
  25. PREDNISONE TAB [Suspect]
     Dosage: LAST DOSE PRIOR TO SAE WAS ON 9/MAR/2012
     Route: 048
     Dates: start: 20120305
  26. CLEMASTINE FUMARATE [Concomitant]
     Route: 048
     Dates: start: 20120220, end: 20120220
  27. ACYCLOVIR [Concomitant]
     Indication: INFECTION
     Route: 048
     Dates: start: 20120207
  28. DOXORUBICIN HYDROCHLORIDE [Suspect]
     Route: 042
     Dates: start: 20120305
  29. ACETAMINOPHEN [Concomitant]
     Route: 048
     Dates: start: 20120227, end: 20120227
  30. PAMOL [Concomitant]
     Indication: PAIN
     Route: 048
     Dates: start: 20120207, end: 20120207

REACTIONS (5)
  - DYSPNOEA [None]
  - PULMONARY EMBOLISM [None]
  - BACK PAIN [None]
  - ARTHRALGIA [None]
  - NECK PAIN [None]
